FAERS Safety Report 12907899 (Version 1)
Quarter: 2016Q4

REPORT INFORMATION
  Report Type: Spontaneous
  Country: GB (occurrence: GB)
  Receive Date: 20161103
  Receipt Date: 20161103
  Transmission Date: 20170207
  Serious: Yes (Disabling, Other)
  Sender: FDA-Public Use
  Company Number: GB-GILEAD-2016-0241208

PATIENT
  Sex: Male

DRUGS (5)
  1. ZYDELIG [Suspect]
     Active Substance: IDELALISIB
     Indication: PRODUCT USED FOR UNKNOWN INDICATION
     Route: 048
     Dates: start: 201608
  2. PLACEBO [Concomitant]
     Active Substance: UNSPECIFIED INGREDIENT
  3. BENDAMUSTINE [Concomitant]
     Active Substance: BENDAMUSTINE
  4. OFATUMUMAB [Concomitant]
     Active Substance: OFATUMUMAB
  5. DAPSONE. [Concomitant]
     Active Substance: DAPSONE

REACTIONS (2)
  - Dermatitis exfoliative [Recovering/Resolving]
  - Skin toxicity [Recovering/Resolving]

NARRATIVE: CASE EVENT DATE: 20160915
